FAERS Safety Report 8399586-4 (Version None)
Quarter: 2012Q2

REPORT INFORMATION
  Report Type: 
  Country: None (occurrence: None)
  Receive Date: 20120531
  Receipt Date: 20120522
  Transmission Date: 20120825
  Serious: Yes (Other)
  Sender: FDA-Public Use
  Company Number: US-BRISTOL-MYERS SQUIBB COMPANY-16613408

PATIENT
  Age: 57 Year
  Sex: Female
  Weight: 73 kg

DRUGS (2)
  1. ORENCIA [Suspect]
     Indication: RHEUMATOID ARTHRITIS
     Dosage: ALSO ON SC ABATACEPT STARTED TWO MONTHS AGO.
     Route: 042
  2. INSULIN [Concomitant]

REACTIONS (3)
  - NASOPHARYNGITIS [None]
  - SURGERY [None]
  - HAEMORRHAGE [None]
